FAERS Safety Report 8436344 (Version 3)
Quarter: 2013Q2

REPORT INFORMATION
  Report Type: Spontaneous
  Country: IT (occurrence: IT)
  Receive Date: 20120301
  Receipt Date: 20130509
  Transmission Date: 20140414
  Serious: Yes (Hospitalization)
  Sender: FDA-Public Use
  Company Number: IT-ASTRAZENECA-2012SE12739

PATIENT
  Age: 4117 Week
  Sex: Male

DRUGS (6)
  1. TENORETIC [Suspect]
     Indication: HYPERTENSION
     Dosage: 50MG/12.5MG, ONE TABLET, DAILY
     Route: 048
     Dates: start: 20111201
  2. LASIX [Suspect]
     Indication: CARDIAC FAILURE
     Route: 048
     Dates: start: 20120101, end: 20120209
  3. LASIX [Suspect]
     Indication: CARDIAC FAILURE
     Route: 048
     Dates: start: 20111201, end: 20120209
  4. VASORETIC [Suspect]
     Indication: HYPERTENSION
     Dosage: 20 MG/12.5 MG, ONE TABLET DAILY
     Route: 048
     Dates: start: 20111201, end: 20120210
  5. TRANQUIRIT [Concomitant]
     Route: 048
  6. SELEPARINA [Concomitant]
     Dosage: 3800 UI ANTIXA/0.4 ML INJECTAL SOLUTION

REACTIONS (1)
  - Renal failure acute [Recovered/Resolved]
